FAERS Safety Report 7488200-8 (Version None)
Quarter: 2011Q2

REPORT INFORMATION
  Report Type: 
  Country: None (occurrence: None)
  Receive Date: 20110518
  Receipt Date: 20110512
  Transmission Date: 20111010
  Serious: Yes (Other)
  Sender: FDA-Public Use
  Company Number: PHHY2010BR81333

PATIENT
  Sex: Female
  Weight: 34 kg

DRUGS (8)
  1. EXELON [Suspect]
     Dosage: 9.5 MG/24 HOURS (1 PATCH)
     Route: 062
     Dates: start: 20100801
  2. CALSAN [Concomitant]
     Indication: BONE DISORDER
     Dosage: 1 DF AFTER LUNCH
     Route: 048
     Dates: start: 20100101
  3. SOMALGIN [Concomitant]
     Indication: CEREBROVASCULAR ACCIDENT
     Dosage: 1 DF BEFORE LUNCH
     Route: 048
     Dates: start: 20080101
  4. AMLODIPINE [Concomitant]
     Indication: HYPERTENSION
     Dosage: 1 TABLETE IN THE AFTERNOON
     Route: 048
  5. ENALAPRIL MALEATE AND HYDROCHLOROTHIAZIDE [Concomitant]
     Indication: HYPERTENSION
     Dosage: 1 TABLET IN THE MORNING
     Route: 048
  6. ALENDRONATE SODIUM [Concomitant]
     Indication: BONE DISORDER
     Dosage: 1 DF, QW
     Route: 048
     Dates: start: 20100101
  7. EXELON [Suspect]
     Indication: DEMENTIA ALZHEIMER'S TYPE
     Dosage: 4.6 MG/24 HOURS (1 PATCH)
     Route: 062
     Dates: start: 20100101
  8. SYNTHROID [Concomitant]
     Indication: THYROID DISORDER
     Dosage: 1 TABLET IN FASTING
     Route: 048
     Dates: start: 20080101

REACTIONS (4)
  - CARDIOVASCULAR DISORDER [None]
  - HALLUCINATION, VISUAL [None]
  - PRODUCT ADHESION ISSUE [None]
  - ACTIVITIES OF DAILY LIVING IMPAIRED [None]
